FAERS Safety Report 7320635-6 (Version None)
Quarter: 2011Q1

REPORT INFORMATION
  Report Type: 
  Country: None (occurrence: None)
  Receive Date: 20110228
  Receipt Date: 20110217
  Transmission Date: 20110831
  Serious: Yes (Other)
  Sender: FDA-Public Use
  Company Number: US-JNJFOC-20100706847

PATIENT
  Sex: Female
  Weight: 52.62 kg

DRUGS (6)
  1. REMICADE [Suspect]
     Indication: CROHN'S DISEASE
     Route: 042
  2. REMICADE [Suspect]
     Indication: ANKYLOSING SPONDYLITIS
     Route: 042
  3. METHOTREXATE [Suspect]
     Indication: ANKYLOSING SPONDYLITIS
     Route: 048
     Dates: end: 20100101
  4. REMICADE [Suspect]
     Route: 042
  5. METHOTREXATE [Suspect]
     Indication: CROHN'S DISEASE
     Route: 048
     Dates: end: 20100101
  6. REMICADE [Suspect]
     Route: 042

REACTIONS (7)
  - GLOSSODYNIA [None]
  - DIPLOPIA [None]
  - MIGRAINE [None]
  - VISION BLURRED [None]
  - SWOLLEN TONGUE [None]
  - THROAT IRRITATION [None]
  - INFUSION RELATED REACTION [None]
